FAERS Safety Report 8221678-0 (Version None)
Quarter: 2012Q1

REPORT INFORMATION
  Report Type: 
  Country: None (occurrence: None)
  Receive Date: 20120320
  Receipt Date: 20120312
  Transmission Date: 20120608
  Serious: Yes (Other)
  Sender: FDA-Public Use
  Company Number: US-VERTEX PHARMACEUTICALS INC.-AE-2012-003493

PATIENT
  Sex: Male
  Weight: 95.34 kg

DRUGS (5)
  1. RIBAVIRIN [Concomitant]
     Indication: HEPATITIS C
     Route: 048
     Dates: start: 20111202, end: 20120215
  2. INCIVEK [Suspect]
     Indication: HEPATITIS C
     Route: 048
     Dates: start: 20111202, end: 20120215
  3. MULTI-VITAMIN [Concomitant]
     Indication: MEDICAL DIET
     Route: 048
  4. HYDROCODONE [Concomitant]
     Indication: PAIN
     Route: 048
  5. PEG-INTRON [Concomitant]
     Indication: HEPATITIS C
     Route: 058
     Dates: start: 20111202, end: 20120215

REACTIONS (6)
  - VISUAL IMPAIRMENT [None]
  - HAEMORRHOIDS [None]
  - RASH VESICULAR [None]
  - RECTAL HAEMORRHAGE [None]
  - ANORECTAL DISCOMFORT [None]
  - ANAL PRURITUS [None]
